FAERS Safety Report 9499631 (Version 1)
Quarter: 2013Q3

REPORT INFORMATION
  Report Type: Report from Study
  Country: IT (occurrence: IT)
  Receive Date: 20130905
  Receipt Date: 20130905
  Transmission Date: 20140515
  Serious: Yes (Death)
  Sender: FDA-Public Use
  Company Number: IT-ROCHE-1270261

PATIENT
  Sex: 0

DRUGS (9)
  1. MYCOPHENOLATE MOFETIL [Suspect]
     Indication: PROPHYLAXIS AGAINST TRANSPLANT REJECTION
     Dosage: DAY 1
     Route: 048
  2. MYCOPHENOLATE MOFETIL [Suspect]
     Dosage: REDUCED BY DAY 15
     Route: 048
  3. BASILIXIMAB [Suspect]
     Indication: PROPHYLAXIS AGAINST TRANSPLANT REJECTION
     Dosage: ON DAY 0 AND DAY 4
     Route: 042
  4. TACROLIMUS [Suspect]
     Indication: PROPHYLAXIS AGAINST TRANSPLANT REJECTION
     Dosage: DAY 1 AND THEN, THE DOSE WAS ADJUSTED TO TARGET AND MAINTAIN A TROUGH BLOOD LEVEL (C0)OF 8-12 NG/ML
     Route: 048
  5. METHYLPREDNISOLONE [Suspect]
     Indication: PROPHYLAXIS AGAINST TRANSPLANT REJECTION
     Dosage: ON DAY 0 INTRA-OPERATIVELY
     Route: 042
  6. METHYLPREDNISOLONE [Suspect]
     Dosage: DAY 1
     Route: 042
  7. PREDNISONE [Suspect]
     Indication: PROPHYLAXIS AGAINST TRANSPLANT REJECTION
     Dosage: DAY 2
     Route: 048
  8. PREDNISONE [Suspect]
     Dosage: TAPERED DOSE DAY 30
     Route: 048
  9. PREDNISONE [Suspect]
     Dosage: TAPERED DOSE DAY 90
     Route: 048

REACTIONS (1)
  - Renal cancer [Fatal]
